FAERS Safety Report 6634734-5 (Version None)
Quarter: 2010Q1

REPORT INFORMATION
  Report Type: 
  Country: None (occurrence: None)
  Receive Date: 20100315
  Receipt Date: 20100304
  Transmission Date: 20100710
  Serious: Yes (Other)
  Sender: FDA-Public Use
  Company Number: CA-JNJFOC-20100302120

PATIENT
  Sex: Male
  Weight: 94 kg

DRUGS (10)
  1. REMICADE [Suspect]
     Indication: ANKYLOSING SPONDYLITIS
     Route: 042
  2. REMICADE [Suspect]
     Route: 042
  3. GABAPENTIN [Concomitant]
     Indication: NEURALGIA
  4. BISOPROLOL [Concomitant]
     Indication: HYPERTENSION
  5. CRESTOR [Concomitant]
     Indication: BLOOD CHOLESTEROL
  6. NAPROXEN [Concomitant]
     Indication: PAIN
  7. ADVIL LIQUI-GELS [Concomitant]
     Indication: PAIN
  8. TYLENOL-500 [Concomitant]
     Indication: PAIN
  9. ASPIRIN [Concomitant]
  10. ATROVENT [Concomitant]

REACTIONS (3)
  - DRY SKIN [None]
  - PAIN IN EXTREMITY [None]
  - PRURITUS [None]
